FAERS Safety Report 5901970-2 (Version None)
Quarter: 2008Q3

REPORT INFORMATION
  Report Type: 
  Country: None (occurrence: None)
  Receive Date: 20080929
  Receipt Date: 20080917
  Transmission Date: 20090109
  Serious: Yes (Hospitalization, Other)
  Sender: FDA-Public Use
  Company Number: US-ROCHE-567775

PATIENT
  Age: 49 Year
  Sex: Male

DRUGS (8)
  1. PEGASYS [Suspect]
     Indication: HEPATITIS C
     Route: 058
     Dates: end: 20050101
  2. PEGASYS [Suspect]
     Route: 058
  3. COPEGUS [Suspect]
     Indication: HEPATITIS C
     Route: 065
     Dates: end: 20050101
  4. COPEGUS [Suspect]
     Route: 065
  5. LEXAPRO [Concomitant]
  6. ALPRAZOLAM [Concomitant]
  7. CYCLOBENZAPRINE HCL [Concomitant]
  8. MARINOL [Concomitant]
     Indication: NAUSEA

REACTIONS (6)
  - ANAEMIA [None]
  - HEPATITIS C [None]
  - INSOMNIA [None]
  - INTERVERTEBRAL DISC PROTRUSION [None]
  - MENTAL DISORDER [None]
  - MUSCLE SPASMS [None]
